FAERS Safety Report 9330724 (Version 2)
Quarter: 2013Q2

REPORT INFORMATION
  Report Type: Spontaneous
  Country: BR (occurrence: BR)
  Receive Date: 20130605
  Receipt Date: 20130627
  Transmission Date: 20140414
  Serious: Yes (Hospitalization, Other)
  Sender: FDA-Public Use
  Company Number: BR-JNJFOC-20130518361

PATIENT
  Age: 0 Year
  Sex: Male
  Weight: 10.3 kg

DRUGS (1)
  1. TYLENOL GOTAS [Suspect]
     Indication: PYREXIA
     Route: 048
     Dates: start: 20130102

REACTIONS (2)
  - Accidental overdose [Recovered/Resolved]
  - Product dropper issue [Unknown]
